FAERS Safety Report 9445994 (Version 2)
Quarter: 2013Q3

REPORT INFORMATION
  Report Type: Spontaneous
  Country: IT (occurrence: IT)
  Receive Date: 20130807
  Receipt Date: 20130909
  Transmission Date: 20140515
  Serious: Yes (Life-Threatening, Other)
  Sender: FDA-Public Use
  Company Number: IT-ASTRAZENECA-2013SE54703

PATIENT
  Age: 30077 Day
  Sex: Female

DRUGS (10)
  1. ATENOLOL [Suspect]
     Indication: HYPERTENSION
     Route: 048
     Dates: start: 20110101, end: 20130530
  2. ATENOLOL [Suspect]
     Indication: HYPERTENSION
     Route: 048
  3. RYTMONORM [Suspect]
     Indication: ATRIAL FIBRILLATION
     Route: 048
     Dates: start: 20110101, end: 20130530
  4. ENALAPRIL [Suspect]
     Indication: HYPERTENSION
  5. ARIXTRA [Concomitant]
  6. ANTRA [Concomitant]
  7. TACHIDOL [Concomitant]
  8. RILUTEK [Concomitant]
     Indication: AMYOTROPHIC LATERAL SCLEROSIS
  9. CITALOPRAM [Concomitant]
  10. ALPRAZOLAM [Concomitant]

REACTIONS (4)
  - Malaise [Recovering/Resolving]
  - Oxygen saturation decreased [Unknown]
  - Bradycardia [Recovering/Resolving]
  - Bradyarrhythmia [Unknown]
